FAERS Safety Report 11650183 (Version 1)
Quarter: 2015Q4

REPORT INFORMATION
  Report Type: Spontaneous
  Country: US (occurrence: None)
  Receive Date: 20151021
  Receipt Date: 20151021
  Transmission Date: 20160304
  Serious: Yes (Other)
  Sender: FDA-Public Use
  Company Number: US-MDT-ADR-2015-01991

PATIENT
  Age: 50 Year
  Sex: Male

DRUGS (2)
  1. BACLOFEN INTRATHECAL 300.0 MCG/ML [Suspect]
     Active Substance: BACLOFEN
     Indication: SPINAL PAIN
  2. CLONIDINE INTRATHECAL 400.0 UG/ML [Suspect]
     Active Substance: CLONIDINE
     Indication: SPINAL PAIN

REACTIONS (3)
  - Drug withdrawal syndrome [None]
  - Dysstasia [None]
  - Movement disorder [None]
